FAERS Safety Report 5490361-7 (Version None)
Quarter: 2007Q4

REPORT INFORMATION
  Report Type: 
  Country: None (occurrence: None)
  Receive Date: 20071015
  Receipt Date: 20070612
  Transmission Date: 20080405
  Serious: Yes (Other)
  Sender: FDA-Public Use
  Company Number: PHEH2007US07736

PATIENT
  Age: 64 Year
  Sex: Female

DRUGS (1)
  1. MIACALCIN [Suspect]
     Indication: RESORPTION BONE INCREASED
     Dosage: 200 IU, QD, INTRANASAL
     Route: 050
     Dates: start: 20070419

REACTIONS (6)
  - DIZZINESS [None]
  - FLUSHING [None]
  - HYPERTENSION [None]
  - NASAL CONGESTION [None]
  - PRURITUS GENERALISED [None]
  - URTICARIA [None]
